FAERS Safety Report 5159480-9 (Version None)
Quarter: 2006Q4

REPORT INFORMATION
  Report Type: 
  Country: None (occurrence: None)
  Receive Date: 20061122
  Receipt Date: 20061122
  Transmission Date: 20070319
  Serious: Yes (Hospitalization)
  Sender: FDA-Public Use
  Company Number: None

PATIENT
  Age: 55 Year
  Sex: Female
  Weight: 105.6881 kg

DRUGS (7)
  1. ELOXATIN [Suspect]
     Indication: COLON CANCER
     Dosage: 180MG  Q2WEEKS  IV
     Route: 042
     Dates: start: 20061002
  2. ELOXATIN [Suspect]
     Indication: COLON CANCER
     Dosage: 180MG  Q2WEEKS  IV
     Route: 042
     Dates: start: 20061016
  3. AVASTIN [Concomitant]
  4. LEUCOVORIN [Concomitant]
  5. FLUOROURACIL [Concomitant]
  6. ALOXI [Concomitant]
  7. DECADRON [Concomitant]

REACTIONS (5)
  - CHEST DISCOMFORT [None]
  - DYSPNOEA [None]
  - HYPERHIDROSIS [None]
  - NAUSEA [None]
  - VOMITING [None]
